FAERS Safety Report 17781055 (Version 1)
Quarter: 2020Q2

REPORT INFORMATION
  Report Type: Spontaneous
  Country: US (occurrence: US)
  Receive Date: 20200513
  Receipt Date: 20200513
  Transmission Date: 20200714
  Serious: Yes (Hospitalization)
  Sender: FDA-Public Use
  Company Number: None

PATIENT
  Age: 73 Year
  Sex: Male
  Weight: 133.36 kg

DRUGS (1)
  1. ACETAZOLAMIDE (ACETAZOLAMIDE 500MG CAP , SA) [Suspect]
     Active Substance: ACETAZOLAMIDE
     Indication: INTRAOCULAR PRESSURE INCREASED
     Route: 048
     Dates: start: 20191122, end: 20191129

REACTIONS (6)
  - Dementia [None]
  - Sedation [None]
  - Gait disturbance [None]
  - Tremor [None]
  - Asthenia [None]
  - Hypophagia [None]

NARRATIVE: CASE EVENT DATE: 20191128
